FAERS Safety Report 8268783-0 (Version None)
Quarter: 2012Q2

REPORT INFORMATION
  Report Type: 
  Country: None (occurrence: None)
  Receive Date: 20120409
  Receipt Date: 20120409
  Transmission Date: 20120825
  Serious: Yes (Hospitalization)
  Sender: FDA-Public Use
  Company Number: None

PATIENT
  Age: 24 Year
  Sex: Female
  Weight: 68.038 kg

DRUGS (1)
  1. ALESSE [Suspect]
     Indication: ORAL CONTRACEPTION
     Dosage: 1 TAB
     Route: 048
     Dates: start: 20090609, end: 20120208

REACTIONS (1)
  - DEEP VEIN THROMBOSIS [None]
